FAERS Safety Report 7970713-3 (Version None)
Quarter: 2011Q4

REPORT INFORMATION
  Report Type: 
  Country: None (occurrence: None)
  Receive Date: 20111122
  Receipt Date: 20110822
  Transmission Date: 20120403
  Serious: No
  Sender: FDA-Public Use
  Company Number: PHHY2011US54210

PATIENT
  Age: 32 Year
  Sex: Male

DRUGS (3)
  1. GILENYA [Suspect]
     Indication: MULTIPLE SCLEROSIS
     Dosage: 0.5 MG, QD, ORAL
     Route: 048
     Dates: start: 20110501
  2. ACETAMINOPHEN [Concomitant]
  3. ADVIL (MEFENAMIC ACID) [Concomitant]

REACTIONS (6)
  - FALL [None]
  - GAIT DISTURBANCE [None]
  - DYSURIA [None]
  - BACK PAIN [None]
  - CONTUSION [None]
  - MUSCULAR WEAKNESS [None]
